FAERS Safety Report 9878159 (Version 1)
Quarter: 2014Q1

REPORT INFORMATION
  Report Type: Spontaneous
  Country: US (occurrence: US)
  Receive Date: 20140206
  Receipt Date: 20140206
  Transmission Date: 20141002
  Serious: No
  Sender: FDA-Public Use
  Company Number: US-BAYER-2014-012651

PATIENT
  Age: 34 Year
  Sex: Female

DRUGS (2)
  1. SAFYRAL [Suspect]
     Indication: ENDOMETRIOSIS
     Dosage: UNK
     Dates: start: 201309, end: 201312
  2. SAFYRAL [Suspect]
     Indication: PREMENSTRUAL SYNDROME

REACTIONS (3)
  - Pain [None]
  - Off label use [None]
  - Off label use [None]
